FAERS Safety Report 10158025 (Version 2)
Quarter: 2014Q2

REPORT INFORMATION
  Report Type: Spontaneous
  Country: US (occurrence: US)
  Receive Date: 20140507
  Receipt Date: 20140513
  Transmission Date: 20141212
  Serious: Yes (Other)
  Sender: FDA-Public Use
  Company Number: US-TEVA-479466USA

PATIENT
  Age: 78 Year
  Sex: Female
  Weight: 113.05 kg

DRUGS (7)
  1. PROAIR HFA [Suspect]
     Indication: RESPIRATORY DISORDER
     Route: 055
     Dates: start: 20140211
  2. PROAIR HFA [Suspect]
     Indication: DYSPNOEA
  3. PROAIR HFA [Suspect]
     Indication: FATIGUE
  4. INSULIN [Concomitant]
     Indication: DIABETES MELLITUS
  5. BLOOD PRESSURE MEDICATIONS [Concomitant]
     Indication: BLOOD PRESSURE ABNORMAL
  6. THYROID MEDICATIONS [Concomitant]
     Indication: HYPOTHYROIDISM
  7. CHOLESTEROL MEDICATIONS [Concomitant]
     Indication: BLOOD CHOLESTEROL ABNORMAL

REACTIONS (8)
  - Abasia [Not Recovered/Not Resolved]
  - Blood glucose abnormal [Not Recovered/Not Resolved]
  - Thyroid function test abnormal [Not Recovered/Not Resolved]
  - Protein urine present [Not Recovered/Not Resolved]
  - Glycosylated haemoglobin increased [Not Recovered/Not Resolved]
  - Dyspnoea [Not Recovered/Not Resolved]
  - Fatigue [Not Recovered/Not Resolved]
  - Drug ineffective [Not Recovered/Not Resolved]
